FAERS Safety Report 24736773 (Version 3)
Quarter: 2025Q1

REPORT INFORMATION
  Report Type: Spontaneous
  Country: JP (occurrence: JP)
  Receive Date: 20241216
  Receipt Date: 20250219
  Transmission Date: 20250409
  Serious: Yes (Hospitalization, Other)
  Sender: ALEXION PHARMACEUTICALS
  Company Number: JP-ASTRAZENECA-240138677_013120_P_1

PATIENT
  Age: 82 Year
  Weight: 52 kg

DRUGS (25)
  1. DURVALUMAB [Suspect]
     Active Substance: DURVALUMAB
     Indication: Bile duct cancer
     Dosage: 1500 MILLIGRAM, Q3W
  2. DURVALUMAB [Suspect]
     Active Substance: DURVALUMAB
     Indication: Bile duct cancer
  3. CISPLATIN [Concomitant]
     Active Substance: CISPLATIN
     Indication: Bile duct cancer
  4. CISPLATIN [Concomitant]
     Active Substance: CISPLATIN
     Indication: Bile duct cancer
  5. GEMCITABINE [Concomitant]
     Active Substance: GEMCITABINE
     Indication: Bile duct cancer
  6. GEMCITABINE [Concomitant]
     Active Substance: GEMCITABINE
  7. AMLODIPINE [Concomitant]
     Active Substance: AMLODIPINE BESYLATE
  8. AMLODIPINE [Concomitant]
     Active Substance: AMLODIPINE BESYLATE
  9. ROSUVASTATIN [Concomitant]
     Active Substance: ROSUVASTATIN
  10. ROSUVASTATIN [Concomitant]
     Active Substance: ROSUVASTATIN
  11. URSODIOL [Concomitant]
     Active Substance: URSODIOL
  12. URSODIOL [Concomitant]
     Active Substance: URSODIOL
  13. MAGNESIUM OXIDE [Concomitant]
     Active Substance: MAGNESIUM OXIDE
  14. MAGNESIUM OXIDE [Concomitant]
     Active Substance: MAGNESIUM OXIDE
  15. SENNOSIDES [Concomitant]
     Active Substance: SENNOSIDES
  16. SENNOSIDES [Concomitant]
     Active Substance: SENNOSIDES
  17. LASIX [Concomitant]
     Active Substance: FUROSEMIDE
  18. LASIX [Concomitant]
     Active Substance: FUROSEMIDE
  19. NOVAMIN [Concomitant]
  20. GLYCERIN [Concomitant]
     Active Substance: GLYCERIN
     Route: 065
  21. GLYCERIN [Concomitant]
     Active Substance: GLYCERIN
     Route: 065
  22. XYLOCAINE [Concomitant]
     Active Substance: LIDOCAINE HYDROCHLORIDE
     Route: 065
  23. XYLOCAINE [Concomitant]
     Active Substance: LIDOCAINE HYDROCHLORIDE
     Route: 065
  24. GEMCITABINE HYDROCHLORIDE [Concomitant]
     Active Substance: GEMCITABINE HYDROCHLORIDE
     Indication: Bile duct cancer
  25. GEMCITABINE HYDROCHLORIDE [Concomitant]
     Active Substance: GEMCITABINE HYDROCHLORIDE

REACTIONS (1)
  - Aplasia pure red cell [Recovered/Resolved]
